FAERS Safety Report 19994994 (Version 1)
Quarter: 2021Q4

REPORT INFORMATION
  Report Type: Spontaneous
  Country: US (occurrence: US)
  Receive Date: 20211025
  Receipt Date: 20211025
  Transmission Date: 20220303
  Serious: Yes (Life-Threatening)
  Sender: FDA-Public Use
  Company Number: None

PATIENT
  Age: 51 Year
  Sex: Female
  Weight: 40.5 kg

DRUGS (4)
  1. HUMALOG [Suspect]
     Active Substance: INSULIN LISPRO
     Indication: Latent autoimmune diabetes in adults
     Dosage: ?          OTHER ROUTE:INJECTED INTO BODYFAT
  2. LANTUS [Suspect]
     Active Substance: INSULIN GLARGINE
  3. MULTI-VITAMIN [Concomitant]
     Active Substance: .ALPHA.-TOCOPHEROL ACETATE, DL-\ASCORBIC ACID\CYANOCOBALAMIN\FLUORIDE ION\FOLIC ACID\NIACIN\PYRIDOXI
  4. ALGAE SUPPLEMENT [Concomitant]

REACTIONS (15)
  - Drug intolerance [None]
  - Pain [None]
  - Impaired work ability [None]
  - Insomnia [None]
  - Loss of personal independence in daily activities [None]
  - Swelling [None]
  - Pain in extremity [None]
  - Pain in extremity [None]
  - Pain [None]
  - Erythromelalgia [None]
  - Presyncope [None]
  - Alopecia [None]
  - Chapped lips [None]
  - Sunburn [None]
  - Rash [None]

NARRATIVE: CASE EVENT DATE: 20190901
